FAERS Safety Report 10487562 (Version 3)
Quarter: 2015Q1

REPORT INFORMATION
  Report Type: Report from Study
  Country: CA (occurrence: CA)
  Receive Date: 20141001
  Receipt Date: 20150114
  Transmission Date: 20150720
  Serious: Yes (Hospitalization, Other)
  Sender: FDA-Public Use
  Company Number: CA-BRISTOL-MYERS SQUIBB COMPANY-21438924

PATIENT
  Age: 71 Year
  Sex: Male

DRUGS (7)
  1. ABATACEPT [Suspect]
     Active Substance: ABATACEPT
     Indication: RHEUMATOID ARTHRITIS
     Dosage: 750 MG, Q4WK
     Route: 042
     Dates: start: 20080715
  2. EURO D [Concomitant]
  3. COUMADIN [Concomitant]
     Active Substance: WARFARIN SODIUM
  4. AVAPRO [Concomitant]
     Active Substance: IRBESARTAN
  5. ATIVAN [Concomitant]
     Active Substance: LORAZEPAM
  6. EXTERNAL-PREDNISONE [Concomitant]
  7. NEXIUM [Concomitant]
     Active Substance: ESOMEPRAZOLE MAGNESIUM

REACTIONS (4)
  - Tendon rupture [Unknown]
  - Myocardial infarction [Unknown]
  - Aortic aneurysm [Unknown]
  - Muscle rupture [Unknown]

NARRATIVE: CASE EVENT DATE: 20140908
